FAERS Safety Report 7544009-8 (Version None)
Quarter: 2011Q2

REPORT INFORMATION
  Report Type: 
  Country: None (occurrence: None)
  Receive Date: 20110613
  Receipt Date: 20040914
  Transmission Date: 20111010
  Serious: Yes (Life-Threatening)
  Sender: FDA-Public Use
  Company Number: PHHO1998ES01067

PATIENT
  Sex: Male

DRUGS (8)
  1. NITROGLYCERIN [Concomitant]
     Dates: start: 19981001
  2. RANITIDINE [Concomitant]
     Dates: start: 19980930
  3. PREDNISONE [Concomitant]
     Dates: start: 19980930
  4. BISOPROLOL FUMARATE [Concomitant]
     Dates: start: 19981001
  5. CLORACEPATO (CLORAZEPATE DIPOTASSIUM) [Concomitant]
     Dates: start: 19981003
  6. AZATHIOPRINE [Concomitant]
     Dates: start: 19980930
  7. SANDIMMUNE [Suspect]
     Dosage: 350 MG, QD
     Route: 048
     Dates: start: 19980930
  8. ATORVASTINA (ATORVASTATIN) [Concomitant]
     Dates: start: 19981010

REACTIONS (2)
  - ANGINA PECTORIS [None]
  - CHEST DISCOMFORT [None]
